FAERS Safety Report 13614423 (Version 1)
Quarter: 2017Q2

REPORT INFORMATION
  Report Type: Spontaneous
  Country: RO (occurrence: RO)
  Receive Date: 20170606
  Receipt Date: 20170606
  Transmission Date: 20170830
  Serious: Yes (Other)
  Sender: FDA-Public Use
  Company Number: RO-AUROBINDO-AUR-APL-2017-35002

PATIENT
  Age: 28 Year
  Sex: Female

DRUGS (4)
  1. LOPINAVIR + RITONAVIR [Suspect]
     Active Substance: LOPINAVIR\RITONAVIR
     Indication: HIV INFECTION
     Route: 065
  2. ABACAVIR                           /01401602/ [Suspect]
     Active Substance: ABACAVIR SULFATE
     Indication: HIV INFECTION
     Route: 065
  3. ZIDOVUDINE. [Suspect]
     Active Substance: ZIDOVUDINE
     Indication: HIV INFECTION
     Route: 065
  4. LAMIVUDINE. [Suspect]
     Active Substance: LAMIVUDINE
     Indication: HIV INFECTION
     Dosage: UNK
     Route: 065
     Dates: start: 2006

REACTIONS (4)
  - Loss of consciousness [Recovered/Resolved]
  - Motor dysfunction [Recovered/Resolved]
  - Treatment noncompliance [Recovered/Resolved]
  - Ballismus [Recovered/Resolved]

NARRATIVE: CASE EVENT DATE: 201603
